FAERS Safety Report 25329996 (Version 2)
Quarter: 2025Q2

REPORT INFORMATION
  Report Type: Spontaneous
  Country: JP (occurrence: JP)
  Receive Date: 20250519
  Receipt Date: 20250619
  Transmission Date: 20250716
  Serious: Yes (Life-Threatening, Hospitalization)
  Sender: SUNOVION
  Company Number: JP-SMPA-2025SPA006231AA

PATIENT

DRUGS (1)
  1. RELUGOLIX [Suspect]
     Active Substance: RELUGOLIX
     Indication: Uterine leiomyoma
     Route: 048

REACTIONS (2)
  - Pelvic organ prolapse [Recovered/Resolved]
  - Abnormal uterine bleeding [Recovered/Resolved]
